FAERS Safety Report 12368934 (Version 1)
Quarter: 2016Q2

REPORT INFORMATION
  Report Type: Spontaneous
  Country: US (occurrence: US)
  Receive Date: 20160513
  Receipt Date: 20160513
  Transmission Date: 20160815
  Serious: Yes (Other)
  Sender: FDA-Public Use
  Company Number: US-PFIZER INC-2016249717

PATIENT
  Age: 24 Year
  Sex: Male
  Weight: 61.23 kg

DRUGS (2)
  1. BACLOFEN. [Concomitant]
     Active Substance: BACLOFEN
  2. NEURONTIN [Suspect]
     Active Substance: GABAPENTIN
     Indication: NEURALGIA
     Dosage: 200 MG, 4X/DAY
     Dates: start: 201301

REACTIONS (7)
  - Suicidal ideation [Unknown]
  - Product use issue [Unknown]
  - Headache [Unknown]
  - Chills [Unknown]
  - Panic attack [Unknown]
  - Depression [Unknown]
  - Paraesthesia [Unknown]
